FAERS Safety Report 14603777 (Version 1)
Quarter: 2018Q1

REPORT INFORMATION
  Report Type: Spontaneous
  Country: FR (occurrence: FR)
  Receive Date: 20180306
  Receipt Date: 20180306
  Transmission Date: 20180509
  Serious: Yes (Death)
  Sender: FDA-Public Use
  Company Number: FR-PFIZER INC-2018087546

PATIENT
  Age: 66 Year
  Sex: Female

DRUGS (5)
  1. VANCOMYCIN HCL [Suspect]
     Active Substance: VANCOMYCIN HYDROCHLORIDE
     Dosage: 30 MG/KG, DAILY
  2. VANCOMYCIN HCL [Suspect]
     Active Substance: VANCOMYCIN HYDROCHLORIDE
     Indication: ENDOCARDITIS STAPHYLOCOCCAL
     Dosage: 15 MG/KG, UNK
  3. GENTAMICIN. [Suspect]
     Active Substance: GENTAMICIN
     Indication: ENDOCARDITIS STAPHYLOCOCCAL
     Dosage: 6 MG/KG, UNK
     Route: 040
  4. PIPERACILLIN/TAZOBACTAM [Suspect]
     Active Substance: PIPERACILLIN SODIUM\TAZOBACTAM SODIUM
     Indication: ENDOCARDITIS STAPHYLOCOCCAL
     Dosage: 16 G, DAILY (CONTINUOUS INTRAVENOUS INFUSIONS)
     Route: 042
  5. EPINEPHRINE. [Suspect]
     Active Substance: EPINEPHRINE
     Dosage: UNK
     Route: 040

REACTIONS (1)
  - Drug ineffective [Fatal]
